FAERS Safety Report 18087171 (Version 1)
Quarter: 2020Q3

REPORT INFORMATION
  Report Type: Spontaneous
  Country: US (occurrence: US)
  Receive Date: 20200729
  Receipt Date: 20200729
  Transmission Date: 20201103
  Serious: No
  Sender: FDA-Public Use
  Company Number: US-STRIDES ARCOLAB LIMITED-2020SP005637

PATIENT
  Age: 66 Year
  Sex: Female

DRUGS (4)
  1. MYCOPHENOLATE MOFETIL. [Suspect]
     Active Substance: MYCOPHENOLATE MOFETIL
     Indication: PEMPHIGOID
     Dosage: UNK
     Route: 065
  2. DAPSONE. [Concomitant]
     Active Substance: DAPSONE
     Dosage: 25 MILLIGRAM
     Route: 065
  3. DAPSONE. [Concomitant]
     Active Substance: DAPSONE
     Dosage: 50 MILLIGRAM, QOD
     Route: 065
  4. DAPSONE. [Concomitant]
     Active Substance: DAPSONE
     Indication: PEMPHIGOID
     Dosage: UNK
     Route: 065

REACTIONS (1)
  - Off label use [Unknown]
